FAERS Safety Report 17184742 (Version 1)
Quarter: 2019Q4

REPORT INFORMATION
  Report Type: Spontaneous
  Country: US (occurrence: US)
  Receive Date: 20191220
  Receipt Date: 20191220
  Transmission Date: 20200122
  Serious: Yes (Death, Other)
  Sender: FDA-Public Use
  Company Number: US-SUNOVION-2019SUN005509

PATIENT
  Age: 73 Year
  Sex: Female

DRUGS (1)
  1. LONHALA MAGNAIR [Suspect]
     Active Substance: GLYCOPYRROLATE
     Dosage: 25 ?G, UNK
     Route: 055

REACTIONS (1)
  - Death [Fatal]

NARRATIVE: CASE EVENT DATE: 20191212
